FAERS Safety Report 17871635 (Version 1)
Quarter: 2020Q2

REPORT INFORMATION
  Report Type: Spontaneous
  Country: RU (occurrence: RU)
  Receive Date: 20200608
  Receipt Date: 20200608
  Transmission Date: 20200714
  Serious: Yes (Other)
  Sender: FDA-Public Use
  Company Number: RU-BAUSCH-BL-2020-016400

PATIENT
  Sex: Female

DRUGS (1)
  1. ALFA NORMIX [Suspect]
     Active Substance: RIFAXIMIN
     Indication: GASTROINTESTINAL BACTERIAL OVERGROWTH
     Route: 048

REACTIONS (3)
  - Seizure [Unknown]
  - Dizziness [Unknown]
  - Pyrexia [Unknown]
